FAERS Safety Report 5239194-7 (Version None)
Quarter: 2007Q1

REPORT INFORMATION
  Report Type: 
  Country: None (occurrence: None)
  Receive Date: 20070212
  Receipt Date: 20070130
  Transmission Date: 20070707
  Serious: Yes (Death)
  Sender: FDA-Public Use
  Company Number: A-CH2007-14156

PATIENT
  Age: 34 Year
  Sex: Male

DRUGS (2)
  1. TRACLEER [Suspect]
     Indication: PULMONARY HYPERTENSION
     Dosage: SEE IMAGE
     Route: 048
     Dates: end: 20070114
  2. TRACLEER [Suspect]
     Indication: PULMONARY HYPERTENSION
     Dosage: SEE IMAGE
     Route: 048
     Dates: start: 20060315

REACTIONS (4)
  - DISEASE PROGRESSION [None]
  - PULMONARY HYPERTENSION [None]
  - RIGHT VENTRICULAR FAILURE [None]
  - SHOCK [None]
